FAERS Safety Report 24131648 (Version 1)
Quarter: 2024Q3

REPORT INFORMATION
  Report Type: Spontaneous
  Country: ES (occurrence: None)
  Receive Date: 20240724
  Receipt Date: 20240724
  Transmission Date: 20241017
  Serious: Yes (Other)
  Sender: ASTRAZENECA
  Company Number: 2024A161900

PATIENT
  Age: 64 Year
  Sex: Male
  Weight: 69 kg

DRUGS (3)
  1. DAPAGLIFLOZIN PROPANEDIOL\METFORMIN HYDROCHLORIDE [Suspect]
     Active Substance: DAPAGLIFLOZIN PROPANEDIOL\METFORMIN HYDROCHLORIDE
     Indication: Diabetes mellitus
     Route: 048
     Dates: start: 20230327, end: 20230425
  2. JARDIANCE [Suspect]
     Active Substance: EMPAGLIFLOZIN
     Indication: Diabetes mellitus
     Route: 048
     Dates: start: 20210615, end: 20220714
  3. METFORMIN\SITAGLIPTIN [Concomitant]
     Active Substance: METFORMIN\SITAGLIPTIN
     Indication: Diabetes mellitus
     Route: 048
     Dates: start: 2016, end: 2023

REACTIONS (3)
  - Candida infection [Recovered/Resolved]
  - Acquired phimosis [Recovered/Resolved]
  - Balanitis candida [Recovered/Resolved]

NARRATIVE: CASE EVENT DATE: 20210601
